FAERS Safety Report 9283995 (Version 1)
Quarter: 2013Q2

REPORT INFORMATION
  Report Type: Spontaneous
  Country: US (occurrence: US)
  Receive Date: 20130510
  Receipt Date: 20130510
  Transmission Date: 20140414
  Serious: Yes (Death, Hospitalization)
  Sender: FDA-Public Use
  Company Number: US-JNJFOC-20130504130

PATIENT
  Age: 4 Decade
  Sex: Male

DRUGS (1)
  1. REOPRO [Suspect]
     Indication: PRODUCT USED FOR UNKNOWN INDICATION
     Dosage: 10 MG/5 ML, 5 ML X 1 VIALS AM
     Route: 065

REACTIONS (2)
  - Death [Fatal]
  - Chest pain [Unknown]
